FAERS Safety Report 5363087-8 (Version None)
Quarter: 2007Q2

REPORT INFORMATION
  Report Type: 
  Country: None (occurrence: None)
  Receive Date: 20070615
  Receipt Date: 20070605
  Transmission Date: 20071010
  Serious: Yes (Death, Hospitalization, Disabling, Other)
  Sender: FDA-Public Use
  Company Number: 2007JP001681

PATIENT
  Age: 54 Year
  Sex: Male
  Weight: 71 kg

DRUGS (23)
  1. PROGRAF [Suspect]
     Indication: BONE MARROW TRANSPLANT
  2. METHOTREXATE [Concomitant]
  3. CORTICOSTEROIDS [Concomitant]
  4. GANCICLOVIR [Concomitant]
  5. FOSCARNET [Concomitant]
  6. IMMUNE GLOBULIN INTRAVENOUS (HUMAN) [Concomitant]
  7. MAXIPIME [Concomitant]
  8. MEROPEN (MEROPENEM) [Concomitant]
  9. DIFLUCAN [Concomitant]
  10. NEUTROGIN (LENOGRASTIM) [Concomitant]
  11. ACYCLOVIR [Concomitant]
  12. GASTER [Concomitant]
  13. ORGARAN [Concomitant]
  14. OMEPRAL [Concomitant]
  15. TIENAM (IMIPENEM, CILASTATIN SODIUM) [Concomitant]
  16. SANGLOPOR (IMMUNOGLOBULIN HUMAN NORMAL) [Concomitant]
  17. DALACIN-S [Concomitant]
  18. MILLISROL (GLYCERYL TRINITRATE) [Concomitant]
  19. ANTROBIN P (ANTITHROMBIN III) [Concomitant]
  20. SOL-MELCORT (METHYLPREDNISOLONE SODIUM SUCCINATE) [Concomitant]
  21. NICARDIPINE HYDROCHLORIDE [Concomitant]
  22. FUNGUARD (MICAFUNGIN) [Concomitant]
  23. CALCICOL (CALCIUM GLUCONATE) [Concomitant]

REACTIONS (17)
  - CEREBRAL INFARCTION [None]
  - CONTINUOUS HAEMODIAFILTRATION [None]
  - DIABETIC HYPERGLYCAEMIC COMA [None]
  - ENCEPHALITIS HERPES [None]
  - GENERAL PHYSICAL HEALTH DETERIORATION [None]
  - HAEMOGLOBIN DECREASED [None]
  - HISTIOCYTOSIS HAEMATOPHAGIC [None]
  - NO THERAPEUTIC RESPONSE [None]
  - PLATELET COUNT DECREASED [None]
  - PLEURAL EFFUSION [None]
  - PNEUMONIA [None]
  - PNEUMONIA BACTERIAL [None]
  - PULMONARY HAEMORRHAGE [None]
  - RASH [None]
  - RENAL IMPAIRMENT [None]
  - RESPIRATORY FAILURE [None]
  - WHITE BLOOD CELL COUNT DECREASED [None]
